FAERS Safety Report 12385700 (Version 1)
Quarter: 2016Q2

REPORT INFORMATION
  Report Type: Spontaneous
  Country: US (occurrence: US)
  Receive Date: 20160519
  Receipt Date: 20160519
  Transmission Date: 20160815
  Serious: Yes (Hospitalization, Other)
  Sender: FDA-Public Use
  Company Number: US-PURDUE-USA-2016-0131013

PATIENT
  Sex: Female

DRUGS (1)
  1. HYDROCODONE BITARTRATE (SIMILAR TO NDA 206627) [Suspect]
     Active Substance: HYDROCODONE BITARTRATE
     Indication: PRODUCT USED FOR UNKNOWN INDICATION
     Dosage: UNK, TID
     Route: 048

REACTIONS (4)
  - Blood glucose decreased [Recovering/Resolving]
  - Dyspnoea [Recovering/Resolving]
  - Accidental overdose [Recovering/Resolving]
  - Hypertension [Recovering/Resolving]
